FAERS Safety Report 9234485 (Version 1)
Quarter: 2013Q2

REPORT INFORMATION
  Report Type: Spontaneous
  Country: US (occurrence: US)
  Receive Date: 20130416
  Receipt Date: 20130416
  Transmission Date: 20140414
  Serious: No
  Sender: FDA-Public Use
  Company Number: US-BANPHARM-20120217

PATIENT
  Age: 64 Year
  Sex: Male
  Weight: 112.47 kg

DRUGS (1)
  1. NAPROXEN SODIUM CAPSULES 220MG [Suspect]
     Indication: PAIN
     Dosage: 440 MG, ONCE,
     Route: 048
     Dates: start: 20120928, end: 20120928

REACTIONS (1)
  - Oral discomfort [Recovered/Resolved]
